FAERS Safety Report 5015530-1 (Version None)
Quarter: 2006Q2

REPORT INFORMATION
  Report Type: 
  Country: None (occurrence: None)
  Receive Date: 20060601
  Receipt Date: 20060522
  Transmission Date: 20061013
  Serious: Yes (Death, Life-Threatening, Other)
  Sender: FDA-Public Use
  Company Number: US-AVENTIS-200614607US

PATIENT
  Sex: Female

DRUGS (8)
  1. LOVENOX [Suspect]
     Indication: HYPERCOAGULATION
     Route: 064
     Dates: start: 20050101, end: 20060101
  2. LOVENOX [Suspect]
     Route: 064
     Dates: start: 20060101, end: 20060503
  3. LOVENOX [Suspect]
     Indication: PREGNANCY
     Route: 064
     Dates: start: 20050101, end: 20060101
  4. LOVENOX [Suspect]
     Route: 064
     Dates: start: 20060101, end: 20060503
  5. PROCARDIA [Concomitant]
     Dosage: DOSE: UNKNOWN
     Route: 064
  6. VITAMINS [Concomitant]
     Dosage: DOSE: UNKNOWN
     Route: 064
  7. IRON [Concomitant]
     Dosage: DOSE: UNKNOWN
     Route: 064
  8. CALCIUM WITH VITAMIN D [Concomitant]
     Dosage: DOSE: UNKNOWN
     Route: 064

REACTIONS (6)
  - CEREBRAL HAEMORRHAGE [None]
  - DRUG EXPOSURE DURING PREGNANCY [None]
  - PREGNANCY INDUCED HYPERTENSION [None]
  - PREMATURE BABY [None]
  - PULMONARY HAEMORRHAGE [None]
  - RENAL DISORDER [None]
